FAERS Safety Report 10222732 (Version 1)
Quarter: 2014Q2

REPORT INFORMATION
  Report Type: Spontaneous
  Country: US (occurrence: US)
  Receive Date: 20140606
  Receipt Date: 20140606
  Transmission Date: 20141212
  Serious: Yes (Other)
  Sender: FDA-Public Use
  Company Number: US-ABBVIE-14P-163-1242522-00

PATIENT
  Age: 71 Year
  Sex: 0

DRUGS (1)
  1. ANDROGEL [Suspect]
     Indication: BLOOD TESTOSTERONE DECREASED
     Dates: start: 201201, end: 201210

REACTIONS (6)
  - Cerebrovascular accident [Unknown]
  - Injury [Unknown]
  - Physical disability [Unknown]
  - Pain [Unknown]
  - Physical disability [Unknown]
  - Economic problem [Unknown]
